FAERS Safety Report 8395665 (Version 3)
Quarter: 2017Q3

REPORT INFORMATION
  Report Type: Spontaneous
  Country: US (occurrence: US)
  Receive Date: 20120208
  Receipt Date: 20170823
  Transmission Date: 20171128
  Serious: Yes (Hospitalization, Other)
  Sender: FDA-Public Use
  Company Number: US-JNJFOC-20120202712

PATIENT
  Age: 56 Year
  Sex: Male
  Weight: 111.5 kg

DRUGS (5)
  1. CELLCEPT [Suspect]
     Active Substance: MYCOPHENOLATE MOFETIL\MYCOPHENOLATE MOFETIL HYDROCHLORIDE
     Indication: PSORIASIS
     Route: 048
     Dates: start: 20100301, end: 201107
  2. STELARA [Suspect]
     Active Substance: USTEKINUMAB
     Indication: PSORIASIS
     Dosage: APPROXIMATE A TOTAL OF 3 INJECTIONS WERE RECEIVED
     Route: 058
     Dates: start: 20100519, end: 20101101
  3. ENBREL [Suspect]
     Active Substance: ETANERCEPT
     Indication: PRODUCT USED FOR UNKNOWN INDICATION
     Dates: start: 2009
  4. RAPTIVA [Suspect]
     Active Substance: EFALIZUMAB
     Indication: PRODUCT USED FOR UNKNOWN INDICATION
     Dates: start: 2003, end: 2009
  5. HUMIRA [Suspect]
     Active Substance: ADALIMUMAB
     Indication: PSORIASIS
     Dosage: APPROXIMATE A TOTAL OF 3 INJECTIONS WERE RECEIVED
     Route: 058
     Dates: start: 2009, end: 2010

REACTIONS (1)
  - Non-Hodgkin^s lymphoma [Not Recovered/Not Resolved]

NARRATIVE: CASE EVENT DATE: 201107
